FAERS Safety Report 5018673-1 (Version None)
Quarter: 2006Q2

REPORT INFORMATION
  Report Type: 
  Country: None (occurrence: None)
  Receive Date: 20060530
  Receipt Date: 20060516
  Transmission Date: 20061013
  Serious: Yes (Life-Threatening)
  Sender: FDA-Public Use
  Company Number: M000694

PATIENT
  Age: 26 Year
  Sex: Female
  Weight: 88 kg

DRUGS (6)
  1. ACETADOTE [Suspect]
     Indication: DRUG TOXICITY
     Dosage: 150 MG/KG IV
     Route: 042
     Dates: start: 20060511
  2. BENADRYL [Concomitant]
  3. EXCEDRIN (MIGRAINE) [Concomitant]
  4. MOTRIN [Concomitant]
  5. ACETAMINOPHEN [Concomitant]
  6. KITCHEN CLEANSER [Concomitant]

REACTIONS (5)
  - CARDIO-RESPIRATORY ARREST [None]
  - EXPOSURE TO TOXIC AGENT [None]
  - FORMICATION [None]
  - GRAND MAL CONVULSION [None]
  - INTENTIONAL DRUG MISUSE [None]
